FAERS Safety Report 21675916 (Version 1)
Quarter: 2022Q4

REPORT INFORMATION
  Report Type: Spontaneous
  Country: CN (occurrence: CN)
  Receive Date: 20221202
  Receipt Date: 20221202
  Transmission Date: 20230113
  Serious: Yes (Hospitalization)
  Sender: FDA-Public Use
  Company Number: CN-GLAXOSMITHKLINE-CNCH2022APC046462

PATIENT

DRUGS (3)
  1. DICLOFENAC SODIUM [Suspect]
     Active Substance: DICLOFENAC SODIUM
     Indication: Rib fracture
     Dosage: 25 MG, TID
     Route: 048
     Dates: start: 20221122, end: 20221124
  2. SUCRALFATE [Suspect]
     Active Substance: SUCRALFATE
     Indication: Gastrointestinal disorder prophylaxis
     Dosage: .5 G, TID
     Route: 048
     Dates: start: 20221122, end: 20221124
  3. VITAMIN B1 [Suspect]
     Active Substance: THIAMINE HYDROCHLORIDE
     Indication: Rib fracture
     Dosage: 20 MG, TID
     Route: 048
     Dates: start: 20221122, end: 20221124

REACTIONS (12)
  - Laryngospasm [Recovering/Resolving]
  - Dysphonia [Recovering/Resolving]
  - Chest discomfort [Recovering/Resolving]
  - Pruritus [Recovering/Resolving]
  - Swelling face [Recovering/Resolving]
  - Lip swelling [Recovering/Resolving]
  - Rash [Recovering/Resolving]
  - Nausea [Recovering/Resolving]
  - Vomiting [Recovering/Resolving]
  - Throat tightness [Recovering/Resolving]
  - Chest pain [Recovering/Resolving]
  - Dyspnoea [Recovering/Resolving]

NARRATIVE: CASE EVENT DATE: 20221124
